FAERS Safety Report 21937056 (Version 1)
Quarter: 2023Q1

REPORT INFORMATION
  Report Type: Spontaneous
  Country: US (occurrence: None)
  Receive Date: 20230131
  Receipt Date: 20230131
  Transmission Date: 20230417
  Serious: No
  Sender: FDA-Public Use
  Company Number: None

PATIENT
  Age: 33 Year
  Sex: Female
  Weight: 58.5 kg

DRUGS (1)
  1. BOTOX [Suspect]
     Active Substance: ONABOTULINUMTOXINA
     Indication: Migraine
     Dosage: OTHER QUANTITY : 155 UNITS;?
     Route: 058
     Dates: start: 20220804, end: 20221027

REACTIONS (2)
  - Pruritus [None]
  - Injection related reaction [None]

NARRATIVE: CASE EVENT DATE: 20221027
